FAERS Safety Report 4934559-2 (Version None)
Quarter: 2006Q1

REPORT INFORMATION
  Report Type: 
  Country: None (occurrence: None)
  Receive Date: 20060303
  Receipt Date: 20060213
  Transmission Date: 20060701
  Serious: Yes (Death, Life-Threatening, Hospitalization)
  Sender: FDA-Public Use
  Company Number: 2005106427

PATIENT
  Age: 71 Year
  Sex: Female

DRUGS (2)
  1. LIPITOR [Suspect]
     Indication: HYPERLIPIDAEMIA
     Dosage: 5 MG (5 MG, 1 IN 1 D), ORAL
     Route: 048
     Dates: start: 20050714, end: 20050715
  2. FAMOTIDINE [Concomitant]

REACTIONS (12)
  - ACUTE RESPIRATORY DISTRESS SYNDROME [None]
  - ASCITES [None]
  - CHOLANGIOLITIS [None]
  - DISSEMINATED INTRAVASCULAR COAGULATION [None]
  - GASTRIC ULCER HAEMORRHAGE [None]
  - GASTROENTERITIS [None]
  - HEPATIC FUNCTION ABNORMAL [None]
  - HEPATIC TRAUMA [None]
  - HEPATITIS FULMINANT [None]
  - HYPOPNOEA [None]
  - PANCYTOPENIA [None]
  - SEPSIS [None]
